FAERS Safety Report 20457004 (Version 1)
Quarter: 2022Q1

REPORT INFORMATION
  Report Type: Spontaneous
  Country: US (occurrence: US)
  Receive Date: 20220210
  Receipt Date: 20220210
  Transmission Date: 20220423
  Serious: No
  Sender: FDA-Public Use
  Company Number: US-PERRIGO-21US006713

PATIENT
  Age: 0 Year
  Sex: Female
  Weight: 7.256 kg

DRUGS (1)
  1. CETIRIZINE HYDROCHLORIDE [Suspect]
     Active Substance: CETIRIZINE HYDROCHLORIDE
     Indication: Exposure via breast milk
     Dosage: UNKNOWN, UNKNOWN
     Route: 048
     Dates: start: 20200629

REACTIONS (2)
  - Abnormal faeces [Not Recovered/Not Resolved]
  - Exposure via breast milk [Unknown]

NARRATIVE: CASE EVENT DATE: 20210101
